FAERS Safety Report 14168558 (Version 4)
Quarter: 2019Q4

REPORT INFORMATION
  Report Type: Spontaneous
  Country: US (occurrence: US)
  Receive Date: 20171107
  Receipt Date: 20191002
  Transmission Date: 20200122
  Serious: No
  Sender: FDA-Public Use
  Company Number: US-SA-2017SA181884

PATIENT
  Age: 44 Year
  Sex: Female

DRUGS (3)
  1. TOUJEO [Suspect]
     Active Substance: INSULIN GLARGINE
     Indication: TYPE 2 DIABETES MELLITUS
     Dosage: 100 DF,QD
     Route: 051
     Dates: start: 201702
  2. TOUJEO [Suspect]
     Active Substance: INSULIN GLARGINE
     Dosage: 100 DF,QD
     Route: 051
     Dates: start: 201702
  3. TOUJEO [Suspect]
     Active Substance: INSULIN GLARGINE
     Dosage: 120 U, QD
     Route: 065

REACTIONS (5)
  - Visual impairment [Unknown]
  - Product quality issue [Unknown]
  - Underdose [Unknown]
  - Product dose omission [Unknown]
  - Device issue [Unknown]

NARRATIVE: CASE EVENT DATE: 2017
